FAERS Safety Report 4757250-4 (Version None)
Quarter: 2005Q3

REPORT INFORMATION
  Report Type: 
  Country: None (occurrence: None)
  Receive Date: 20050829
  Receipt Date: 22050818
  Transmission Date: 20060218
  Serious: Yes (Other)
  Sender: FDA-Public Use
  Company Number: HQWYE003218AUG05

PATIENT
  Age: 61 Year
  Sex: Female

DRUGS (3)
  1. PANTOZOL (PANTOPRAZOLE, TABLET, DELAYED RELEASE) [Suspect]
     Indication: HELICOBACTER INFECTION
     Dosage: 40 MG 2 PER 1 DAY
  2. AMOXICILLIN [Suspect]
     Indication: HELICOBACTER INFECTION
     Dosage: 1000 MG 2X PER 1 DAY
  3. CLARITHROMYCIN [Suspect]
     Indication: HELICOBACTER INFECTION
     Dosage: 500 MG 2X PER 1 DAY

REACTIONS (4)
  - FACE OEDEMA [None]
  - PRURITUS [None]
  - RASH [None]
  - TOXIC SKIN ERUPTION [None]
